FAERS Safety Report 6056639-3 (Version None)
Quarter: 2009Q1

REPORT INFORMATION
  Report Type: 
  Country: None (occurrence: None)
  Receive Date: 20090129
  Receipt Date: 20090117
  Transmission Date: 20090719
  Serious: Yes (Other)
  Sender: FDA-Public Use
  Company Number: DE-PFIZER INC-2009157525

PATIENT

DRUGS (2)
  1. ZITHROMAX [Suspect]
     Indication: SKIN BACTERIAL INFECTION
     Dosage: 250 MG, 2X/DAY
     Route: 048
     Dates: start: 20090103, end: 20090103
  2. ZITHROMAX [Suspect]
     Dosage: 250 MG, 1X/DAY
     Dates: start: 20090104, end: 20090107

REACTIONS (2)
  - BRONCHIAL SECRETION RETENTION [None]
  - RESPIRATORY DEPRESSION [None]
